FAERS Safety Report 7911089-7 (Version None)
Quarter: 2011Q4

REPORT INFORMATION
  Report Type: 
  Country: None (occurrence: None)
  Receive Date: 20111108
  Receipt Date: 20111027
  Transmission Date: 20120403
  Serious: Yes (Hospitalization)
  Sender: FDA-Public Use
  Company Number: 2011263440

PATIENT
  Age: 53 Year
  Sex: Female

DRUGS (3)
  1. DALTEPARIN SODIUM [Suspect]
     Indication: LUNG NEOPLASM MALIGNANT
  2. CISPLATIN [Suspect]
     Dosage: 110 MG, DAILY, INTRAVENOUS
     Route: 042
     Dates: start: 20110601
  3. ALIMTA [Suspect]
     Dosage: 750 MG, DAILY, INTRAVENOUS
     Route: 042
     Dates: start: 20110601

REACTIONS (2)
  - ABDOMINAL PAIN UPPER [None]
  - NAUSEA [None]
